APPROVED DRUG PRODUCT: PHENTOLAMINE MESYLATE
Active Ingredient: PHENTOLAMINE MESYLATE
Strength: 5MG/VIAL
Dosage Form/Route: INJECTABLE;INJECTION
Application: A040235 | Product #001 | TE Code: AP
Applicant: HIKMA PHARMACEUTICALS USA INC
Approved: Mar 11, 1998 | RLD: No | RS: Yes | Type: RX